FAERS Safety Report 21962397 (Version 1)
Quarter: 2023Q1

REPORT INFORMATION
  Report Type: Report from Study
  Country: US (occurrence: US)
  Receive Date: 20230207
  Receipt Date: 20230207
  Transmission Date: 20230417
  Serious: No
  Sender: FDA-Public Use
  Company Number: US-ORG100014127-2022001009

PATIENT
  Age: 76 Year
  Sex: Female

DRUGS (14)
  1. LYSODREN [Suspect]
     Active Substance: MITOTANE
     Indication: Adrenal gland cancer
     Dosage: 500 MG: TAKE 6 TABLETS BY MOUTH TWICE DAILY
     Route: 048
     Dates: start: 20220309
  2. Aspirin CHW 81MG [Concomitant]
     Indication: Product used for unknown indication
  3. FUROSEMIDE INJ 10MG/ML [Concomitant]
     Indication: Product used for unknown indication
  4. Furosemide  TAB 20MG [Concomitant]
     Indication: Product used for unknown indication
  5. Glipizide TAB 5MG [Concomitant]
     Indication: Product used for unknown indication
  6. Hydrocort TAB 10MG [Concomitant]
     Indication: Product used for unknown indication
  7. LEVOTHYROXIN TAB 75MCG [Concomitant]
     Indication: Product used for unknown indication
  8. LISINOPRIL [Concomitant]
     Active Substance: LISINOPRIL
     Indication: Product used for unknown indication
  9. METFORMIN [Concomitant]
     Active Substance: METFORMIN HYDROCHLORIDE
     Indication: Product used for unknown indication
  10. METOPRL/HCTZ TAB 100-25MG [Concomitant]
     Indication: Product used for unknown indication
  11. PANTOPRAZOLE TAB 40MG [Concomitant]
     Indication: Product used for unknown indication
  12. POT CHLORIDE TAB 10MEQ ER [Concomitant]
     Indication: Product used for unknown indication
  13. ROSUVASTATIN [Concomitant]
     Active Substance: ROSUVASTATIN
     Indication: Product used for unknown indication
  14. SPIRONO/HCTZ TAB 25/25 [Concomitant]
     Indication: Product used for unknown indication

REACTIONS (1)
  - Dysgeusia [Not Recovered/Not Resolved]
